FAERS Safety Report 7051823-4 (Version None)
Quarter: 2010Q4

REPORT INFORMATION
  Report Type: 
  Country: None (occurrence: None)
  Receive Date: 20101019
  Receipt Date: 20101013
  Transmission Date: 20110411
  Serious: Yes (Hospitalization)
  Sender: FDA-Public Use
  Company Number: FR-ABBOTT-10P-056-0678119-00

PATIENT
  Age: 41 Year
  Sex: Male

DRUGS (7)
  1. DEPAKOTE GASTRO-RESISTANT TABLET [Suspect]
     Indication: PRODUCT USED FOR UNKNOWN INDICATION
     Route: 048
     Dates: end: 20100813
  2. DEPAKOTE GASTRO-RESISTANT TABLET [Suspect]
     Dates: start: 20100813, end: 20100817
  3. DEPAKOTE GASTRO-RESISTANT TABLET [Suspect]
     Dosage: PROGRESSIVELY READMINISTERED
     Dates: start: 20100821
  4. RISPERDAL [Suspect]
     Indication: PRODUCT USED FOR UNKNOWN INDICATION
     Route: 048
     Dates: end: 20100813
  5. RISPERDAL [Suspect]
     Dates: start: 20100813
  6. CYAMEMAZINE [Concomitant]
     Indication: PRODUCT USED FOR UNKNOWN INDICATION
     Dates: start: 20100813
  7. CLONAZEPAM [Concomitant]
     Indication: PRODUCT USED FOR UNKNOWN INDICATION
     Route: 048
     Dates: start: 20100813

REACTIONS (5)
  - ATAXIA [None]
  - DRUG LEVEL ABOVE THERAPEUTIC [None]
  - FALL [None]
  - HYPERAMMONAEMIA [None]
  - HYPOKINESIA [None]
